FAERS Safety Report 8448372-5 (Version None)
Quarter: 2012Q2

REPORT INFORMATION
  Report Type: 
  Country: None (occurrence: None)
  Receive Date: 20120619
  Receipt Date: 20120605
  Transmission Date: 20120825
  Serious: Yes (Hospitalization)
  Sender: FDA-Public Use
  Company Number: IT-AMGEN-ITASP2012036617

PATIENT
  Age: 66 Year
  Sex: Female

DRUGS (4)
  1. ENBREL [Suspect]
     Indication: RHEUMATOID ARTHRITIS
     Dosage: 50 MG, WEEKLY
     Route: 058
     Dates: start: 20060626, end: 20111203
  2. NAPROSYN [Concomitant]
     Dosage: 500 MG, UNK
  3. BONVIVA                            /01304701/ [Concomitant]
     Dosage: 150 MG, UNK
  4. NATECAL D [Concomitant]
     Dosage: 1 DF, UNK

REACTIONS (1)
  - BREAST CANCER FEMALE [None]
